FAERS Safety Report 8506608 (Version 2)
Quarter: 2013Q3

REPORT INFORMATION
  Report Type: Spontaneous
  Country: ZA (occurrence: ZA)
  Receive Date: 20120412
  Receipt Date: 20130816
  Transmission Date: 20140515
  Serious: Yes (Other)
  Sender: FDA-Public Use
  Company Number: PHHY2012ZA029452

PATIENT
  Age: 67 Year
  Sex: Male

DRUGS (4)
  1. EXFORGE [Suspect]
     Dosage: 1 DF, (160MG VALS/ 5MG AMLO) DAILY
     Dates: start: 200807
  2. EXFORGE [Suspect]
     Dosage: 1 DF, (160MG VALS/10MG AMLO) DAILY
  3. SIMVASTATIN [Concomitant]
     Dosage: UNK UKN, UNK
     Dates: start: 2008
  4. ECOTRIN [Concomitant]
     Dosage: UNK UKN, UNK

REACTIONS (8)
  - Fall [Unknown]
  - Lower limb fracture [Unknown]
  - Pain [Unknown]
  - Tibia fracture [Unknown]
  - Fibula fracture [Unknown]
  - Blood pressure increased [Recovering/Resolving]
  - Pruritus [Unknown]
  - Headache [Unknown]
